FAERS Safety Report 11425150 (Version 1)
Quarter: 2015Q3

REPORT INFORMATION
  Report Type: Spontaneous
  Country: US (occurrence: US)
  Receive Date: 20150821
  Receipt Date: 20150821
  Transmission Date: 20151125
  Serious: No
  Sender: FDA-Public Use
  Company Number: US-ELI_LILLY_AND_COMPANY-US201302007656

PATIENT
  Age: 57 Year
  Sex: Female

DRUGS (2)
  1. HUMULIN N [Suspect]
     Active Substance: INSULIN HUMAN
     Indication: TYPE 2 DIABETES MELLITUS
     Dosage: 220 U, UNK
  2. HUMULIN N [Suspect]
     Active Substance: INSULIN HUMAN
     Dosage: 300 U, BID

REACTIONS (7)
  - Blood glucose increased [Not Recovered/Not Resolved]
  - Memory impairment [Not Recovered/Not Resolved]
  - Insulin resistance [Unknown]
  - Pain in extremity [Not Recovered/Not Resolved]
  - Road traffic accident [Unknown]
  - Neuropathy peripheral [Unknown]
  - Stress [Unknown]

NARRATIVE: CASE EVENT DATE: 201302
